FAERS Safety Report 9964334 (Version 7)
Quarter: 2014Q4

REPORT INFORMATION
  Report Type: Report from Study
  Country: US (occurrence: US)
  Receive Date: 20140305
  Receipt Date: 20141009
  Transmission Date: 20150529
  Serious: Yes (Hospitalization)
  Sender: FDA-Public Use
  Company Number: US-SA-2013SA123748

PATIENT
  Age: 54 Year
  Sex: Female

DRUGS (1)
  1. AUBAGIO [Suspect]
     Active Substance: TERIFLUNOMIDE
     Indication: MULTIPLE SCLEROSIS
     Route: 048
     Dates: start: 20131011, end: 20140805

REACTIONS (7)
  - Alopecia [Unknown]
  - Urinary tract infection [Unknown]
  - Gait disturbance [Unknown]
  - Toothache [Unknown]
  - Diarrhoea [Recovered/Resolved]
  - Trichorrhexis [Unknown]
  - Pain [Unknown]
